FAERS Safety Report 11526265 (Version 1)
Quarter: 2015Q3

REPORT INFORMATION
  Report Type: Spontaneous
  Country: US (occurrence: US)
  Receive Date: 20150903
  Receipt Date: 20150903
  Transmission Date: 20151125
  Serious: No
  Sender: FDA-Public Use
  Company Number: US-ELI_LILLY_AND_COMPANY-US201307001702

PATIENT
  Age: 80 Year
  Sex: Female

DRUGS (1)
  1. CYMBALTA [Suspect]
     Active Substance: DULOXETINE HYDROCHLORIDE
     Dosage: 1 DF, EACH MORNING

REACTIONS (8)
  - Chromaturia [Unknown]
  - Pruritus [Unknown]
  - Constipation [Unknown]
  - Fatigue [Unknown]
  - Vomiting [Unknown]
  - Somnolence [Unknown]
  - Nausea [Unknown]
  - Dizziness [Unknown]
